FAERS Safety Report 7667660-3 (Version None)
Quarter: 2011Q3

REPORT INFORMATION
  Report Type: 
  Country: None (occurrence: None)
  Receive Date: 20110806
  Receipt Date: 20110407
  Transmission Date: 20111222
  Serious: No
  Sender: FDA-Public Use
  Company Number: US-ABBOTT-11P-163-0717951-00

PATIENT
  Sex: Male
  Weight: 72.64 kg

DRUGS (7)
  1. ASPIRIN [Concomitant]
     Indication: CARDIOVASCULAR EVENT PROPHYLAXIS
     Route: 048
  2. NIASPAN [Suspect]
     Indication: DYSLIPIDAEMIA
     Route: 048
     Dates: start: 20100101, end: 20110301
  3. NIASPAN [Suspect]
     Route: 048
     Dates: start: 20110301, end: 20110301
  4. ZETIA [Concomitant]
     Indication: BLOOD CHOLESTEROL INCREASED
     Route: 048
  5. FINASTERIDE [Concomitant]
     Indication: BENIGN PROSTATIC HYPERPLASIA
     Route: 048
  6. LIPITOR [Concomitant]
     Indication: DYSLIPIDAEMIA
     Route: 048
  7. LISINOPRIL [Concomitant]
     Indication: BLOOD PRESSURE INCREASED
     Route: 048

REACTIONS (3)
  - FLUSHING [None]
  - PRURITUS [None]
  - INSOMNIA [None]
